FAERS Safety Report 7412520-6 (Version None)
Quarter: 2011Q2

REPORT INFORMATION
  Report Type: 
  Country: None (occurrence: None)
  Receive Date: 20110408
  Receipt Date: 20110408
  Transmission Date: 20111010
  Serious: Yes (Hospitalization)
  Sender: FDA-Public Use
  Company Number: None

PATIENT
  Age: 25 Year
  Sex: Male
  Weight: 86.4 kg

DRUGS (1)
  1. RECLAST [Suspect]
     Indication: SPINAL CORD INJURY
     Dosage: 5MG 1/YR INTRAVENOUS INFUSION
     Route: 042
     Dates: start: 20101229

REACTIONS (1)
  - HEADACHE [None]
